FAERS Safety Report 5727828-X (Version None)
Quarter: 2008Q2

REPORT INFORMATION
  Report Type: 
  Country: None (occurrence: None)
  Receive Date: 20080505
  Receipt Date: 20080421
  Transmission Date: 20081010
  Serious: Yes (Other)
  Sender: FDA-Public Use
  Company Number: US-ELI_LILLY_AND_COMPANY-US200804001113

PATIENT
  Sex: Male

DRUGS (4)
  1. FORTEO [Suspect]
     Indication: OSTEOPOROSIS
     Dosage: UNK, UNK
     Dates: start: 20040201, end: 20040801
  2. FORTEO [Suspect]
     Dosage: UNKNOWN
  3. FORTEO [Suspect]
     Dosage: UNK, UNK
     Dates: start: 20071201
  4. FORTEO [Suspect]

REACTIONS (3)
  - MULTIPLE MYELOMA [None]
  - MUSCULOSKELETAL PAIN [None]
  - OSTEONECROSIS [None]
